FAERS Safety Report 18358180 (Version 2)
Quarter: 2020Q4

REPORT INFORMATION
  Report Type: Other
  Country: JP (occurrence: JP)
  Receive Date: 20201007
  Receipt Date: 20201105
  Transmission Date: 20210114
  Serious: Yes (Hospitalization, Other)
  Sender: FDA-Public Use
  Company Number: JP-ROCHE-2689256

PATIENT
  Age: 78 Year
  Sex: Female

DRUGS (2)
  1. TECENTRIQ [Suspect]
     Active Substance: ATEZOLIZUMAB
     Indication: HER2 POSITIVE BREAST CANCER
     Dosage: DOSAGE IS UNCERTAIN.
     Route: 041
  2. PACLITAXEL ALBUMIN [Concomitant]
     Active Substance: PACLITAXEL
     Route: 041

REACTIONS (7)
  - Stevens-Johnson syndrome [Unknown]
  - Off label use [Unknown]
  - Guillain-Barre syndrome [Unknown]
  - Diabetes mellitus [Unknown]
  - Platelet count decreased [Unknown]
  - Intentional product use issue [Unknown]
  - Pancreatitis acute [Unknown]
